FAERS Safety Report 5066222-4 (Version None)
Quarter: 2006Q3

REPORT INFORMATION
  Report Type: 
  Country: None (occurrence: None)
  Receive Date: 20060801
  Receipt Date: 20060720
  Transmission Date: 20061208
  Serious: Yes (Hospitalization)
  Sender: FDA-Public Use
  Company Number: US-JNJFOC-20060504321

PATIENT
  Sex: Female
  Weight: 65.77 kg

DRUGS (11)
  1. REMICADE [Suspect]
     Indication: RHEUMATOID ARTHRITIS
     Route: 042
  2. METHOTREXATE [Concomitant]
  3. FOLIC ACID [Concomitant]
  4. ATENOLOL [Concomitant]
     Dosage: DOSE INCREASED TO 50 MG IN THE MORNING AND 25 MG IN THE EVENING
  5. ATENOLOL [Concomitant]
  6. CYCLOBENZAPRINE HCL [Concomitant]
  7. LEVOTHYROXINE SODIUM [Concomitant]
  8. BUMETANIDE [Concomitant]
  9. ACETAMINOPHEN AND CODEINE PHOSPHATE #3 [Concomitant]
     Dosage: 10-12 TABLETS DAILY
  10. HYDROCORTISONE TAB [Concomitant]
  11. ALBUTEROL SPIROS [Concomitant]

REACTIONS (1)
  - CORONARY ARTERY DISEASE [None]
